FAERS Safety Report 24706719 (Version 1)
Quarter: 2024Q4

REPORT INFORMATION
  Report Type: Spontaneous
  Country: US (occurrence: US)
  Receive Date: 20241206
  Receipt Date: 20241206
  Transmission Date: 20250115
  Serious: Yes (Hospitalization, Other)
  Sender: RUBICON RESEARCH
  Company Number: US-Rubicon research Pvt ltd-2024000091

PATIENT

DRUGS (1)
  1. CLONAZEPAM [Suspect]
     Active Substance: CLONAZEPAM
     Indication: Product used for unknown indication
     Dosage: (DOSAGE TEXT IS NOT PROVIDED)
     Route: 065

REACTIONS (5)
  - Seizure [Unknown]
  - Hyperhidrosis [Unknown]
  - Heart rate increased [Unknown]
  - Sleep disorder [Unknown]
  - Drug ineffective [Unknown]
